FAERS Safety Report 9968636 (Version 1)
Quarter: 2014Q1

REPORT INFORMATION
  Report Type: Report from Study
  Country: US (occurrence: US)
  Receive Date: 20140306
  Receipt Date: 20140306
  Transmission Date: 20141002
  Serious: No
  Sender: FDA-Public Use
  Company Number: US-ABBVIE-13P-163-1145590-00

PATIENT
  Sex: Female

DRUGS (6)
  1. HUMIRA [Suspect]
     Indication: COLITIS ULCERATIVE
     Dates: start: 20130810, end: 20130810
  2. HUMIRA [Suspect]
     Dates: start: 20130824, end: 20130824
  3. HUMIRA [Suspect]
     Dates: start: 20130907
  4. PREDNISONE [Concomitant]
     Indication: PRODUCT USED FOR UNKNOWN INDICATION
     Dosage: 30 MILLIGRAMS DAILY
     Dates: start: 201306
  5. PREDNISONE [Concomitant]
     Dosage: 10 MILLIGRAMS WEEKLY
     Dates: start: 20130824
  6. PREDNISONE [Concomitant]
     Dosage: 10 MILLIGRAMS EVERY DAY

REACTIONS (1)
  - Haemoglobin abnormal [Not Recovered/Not Resolved]
